FAERS Safety Report 19488572 (Version 3)
Quarter: 2021Q3

REPORT INFORMATION
  Report Type: Report from Study
  Country: CA (occurrence: CA)
  Receive Date: 20210702
  Receipt Date: 20210727
  Transmission Date: 20211014
  Serious: Yes (Other)
  Sender: FDA-Public Use
  Company Number: CA-TAKEDA-2020TUS053527

PATIENT
  Age: 38 Year
  Sex: Female

DRUGS (4)
  1. BERINERT [Concomitant]
     Active Substance: HUMAN C1-ESTERASE INHIBITOR
     Indication: HEREDITARY ANGIOEDEMA
     Dosage: 2000 INTERNATIONAL UNIT, QD
     Route: 042
  2. MIRTAZAPINE. [Concomitant]
     Active Substance: MIRTAZAPINE
     Indication: NARCOLEPSY
     Dosage: 15 MILLIGRAM AT BEDTIME
     Route: 065
  3. LANADELUMAB [Suspect]
     Active Substance: LANADELUMAB
     Indication: HEREDITARY ANGIOEDEMA WITH NORMAL C1 ESTERASE INHIBITOR
     Dosage: 300 MILLIGRAM, 2/WEEK
     Route: 065
     Dates: start: 20200325
  4. MODAFINIL. [Concomitant]
     Active Substance: MODAFINIL
     Indication: NARCOLEPSY
     Dosage: 50 MILLIGRAM IN THE MORNING
     Route: 065

REACTIONS (9)
  - Poor quality sleep [Unknown]
  - Hereditary angioedema [Recovered/Resolved]
  - Nightmare [Unknown]
  - Hypervigilance [Unknown]
  - Intermenstrual bleeding [Not Recovered/Not Resolved]
  - Stress [Unknown]
  - Memory impairment [Not Recovered/Not Resolved]
  - Seizure [Not Recovered/Not Resolved]
  - Product dose omission issue [Unknown]

NARRATIVE: CASE EVENT DATE: 20201023
